FAERS Safety Report 24426616 (Version 1)
Quarter: 2024Q4

REPORT INFORMATION
  Report Type: Spontaneous
  Country: JP (occurrence: JP)
  Receive Date: 20241011
  Receipt Date: 20241011
  Transmission Date: 20250115
  Serious: Yes (Other)
  Sender: AMGEN
  Company Number: JP-PFIZER INC-202400267458

PATIENT
  Sex: Female

DRUGS (7)
  1. ENBREL [Suspect]
     Active Substance: ETANERCEPT
     Indication: Rheumatoid arthritis
     Dosage: 25 MG, 2X/WEEK
     Route: 065
  2. ENBREL [Suspect]
     Active Substance: ETANERCEPT
     Indication: Sjogren^s syndrome
     Dosage: UNK
     Route: 065
  3. LYRICA [Concomitant]
     Active Substance: PREGABALIN
     Indication: Product used for unknown indication
     Dosage: TWO OF LYRICA OD 75 BEFORE BEDTIME, MORNING AND BEDTIME
     Route: 048
  4. HALCION [Concomitant]
     Active Substance: TRIAZOLAM
     Indication: Insomnia
     Dosage: \
     Route: 048
  5. Depas [Concomitant]
     Indication: Insomnia
     Dosage: 0.5 MG
     Route: 065
  6. FLUNITRAZEPAM [Concomitant]
     Active Substance: FLUNITRAZEPAM
     Indication: Insomnia
     Dosage: 1 MG
     Route: 065
  7. Talion [Concomitant]
     Indication: Product used for unknown indication
     Dosage: UNK
     Route: 065

REACTIONS (5)
  - Systemic lupus erythematosus [Unknown]
  - Amyloidosis [Unknown]
  - Herpes zoster [Unknown]
  - Bone deformity [Unknown]
  - Neuralgia [Unknown]
